FAERS Safety Report 15362764 (Version 1)
Quarter: 2020Q3

REPORT INFORMATION
  Report Type: Report from Study
  Country: CA (occurrence: CA)
  Receive Date: 20180907
  Receipt Date: 20180907
  Transmission Date: 20201104
  Serious: Yes (Life-Threatening)
  Sender: FDA-Public Use
  Company Number: CA-ASTRAZENECA-2018SF12845

PATIENT
  Age: 64 Year
  Sex: Male

DRUGS (2)
  1. TREMELIMUMAB. [Suspect]
     Active Substance: TREMELIMUMAB
     Indication: SALIVARY GLAND CANCER
     Route: 042
     Dates: start: 20180828
  2. DURVALUMAB. [Suspect]
     Active Substance: DURVALUMAB
     Indication: SALIVARY GLAND CANCER
     Route: 042
     Dates: start: 20180828

REACTIONS (1)
  - Seizure [Unknown]

NARRATIVE: CASE EVENT DATE: 20180831
